FAERS Safety Report 8046175-7 (Version None)
Quarter: 2012Q1

REPORT INFORMATION
  Report Type: 
  Country: None (occurrence: None)
  Receive Date: 20120113
  Receipt Date: 20111207
  Transmission Date: 20120608
  Serious: Yes (Hospitalization)
  Sender: FDA-Public Use
  Company Number: CH-BRISTOL-MYERS SQUIBB COMPANY-16275240

PATIENT
  Age: 48 Year
  Sex: Male

DRUGS (10)
  1. VIREAD [Suspect]
  2. GANCICLOVIR SODIUM [Suspect]
     Route: 041
     Dates: start: 20110920, end: 20110930
  3. DARAPRIM [Concomitant]
     Route: 048
     Dates: start: 20110909
  4. INTELENCE [Concomitant]
     Dates: start: 20110909
  5. LEUCOVORIN-FARMOS [Concomitant]
  6. VIDEX EC [Suspect]
     Route: 048
     Dates: start: 20110909
  7. CLINDAMYCIN [Concomitant]
     Route: 041
     Dates: start: 20110923, end: 20110930
  8. ISENTRESS [Concomitant]
     Route: 048
     Dates: start: 20110909
  9. PREZISTA [Concomitant]
     Route: 048
     Dates: start: 20110909
  10. NORVIR [Concomitant]
     Route: 048
     Dates: start: 20110909

REACTIONS (2)
  - NEUROPATHY PERIPHERAL [None]
  - GENERAL PHYSICAL HEALTH DETERIORATION [None]
